FAERS Safety Report 19793924 (Version 1)
Quarter: 2021Q3

REPORT INFORMATION
  Report Type: Report from Study
  Country: BR (occurrence: BR)
  Receive Date: 20210906
  Receipt Date: 20210906
  Transmission Date: 20211014
  Serious: Yes (Hospitalization)
  Sender: FDA-Public Use
  Company Number: BR-UCBSA-2021041426

PATIENT
  Age: 24 Year
  Sex: Female
  Weight: 56 kg

DRUGS (1)
  1. CERTOLIZUMAB PEGOL RA [Suspect]
     Active Substance: CERTOLIZUMAB PEGOL
     Indication: RHEUMATOID ARTHRITIS
     Dosage: 400 MILLIGRAM, EV 30 DAYS
     Route: 058
     Dates: start: 2018, end: 20210820

REACTIONS (2)
  - Sinusitis [Unknown]
  - Surgery [Unknown]

NARRATIVE: CASE EVENT DATE: 202103
